FAERS Safety Report 4444776-6 (Version None)
Quarter: 2004Q3

REPORT INFORMATION
  Report Type: 
  Country: None (occurrence: None)
  Receive Date: 20040909
  Receipt Date: 20040830
  Transmission Date: 20050211
  Serious: Yes (Hospitalization)
  Sender: FDA-Public Use
  Company Number: FR-JNJFOC-20040809683

PATIENT
  Age: 43 Year
  Sex: Male

DRUGS (8)
  1. RISPERDAL [Suspect]
     Route: 049
     Dates: start: 20031014, end: 20040621
  2. LEPONEX [Suspect]
     Route: 049
     Dates: start: 20020306, end: 20040621
  3. LEPTICUR [Concomitant]
  4. NOCTRAN [Concomitant]
  5. NOCTRAN [Concomitant]
  6. NOCTRAN [Concomitant]
  7. RIVOTRIL [Concomitant]
  8. DEPAKOTE [Concomitant]
     Dates: start: 20040101, end: 20040705

REACTIONS (2)
  - NEUTROPENIA [None]
  - THROMBOCYTOPENIA [None]
